FAERS Safety Report 15575204 (Version 1)
Quarter: 2018Q4

REPORT INFORMATION
  Report Type: Spontaneous
  Country: FR (occurrence: FR)
  Receive Date: 20181101
  Receipt Date: 20181101
  Transmission Date: 20190205
  Serious: Yes (Hospitalization)
  Sender: FDA-Public Use
  Company Number: FR-PFIZER INC-2018441221

PATIENT
  Age: 35 Year
  Sex: Male
  Weight: 60 kg

DRUGS (6)
  1. TACROLIMUS MONOHYDRATE [Interacting]
     Active Substance: TACROLIMUS
     Indication: LIVER TRANSPLANT
     Dosage: 1.5 MG, 1X/DAY
     Route: 048
     Dates: start: 2014
  2. VINDESINE [Interacting]
     Active Substance: VINDESINE
     Indication: NON-HODGKIN^S LYMPHOMA
     Dosage: 3 MG/M2, UNK
     Route: 042
     Dates: start: 20180823, end: 20180911
  3. MABTHERA [Interacting]
     Active Substance: RITUXIMAB
     Indication: NON-HODGKIN^S LYMPHOMA
     Dosage: 1 DF, EVERY 3 WEEKS
     Route: 058
     Dates: start: 20180803, end: 20180911
  4. DOXORUBICIN HCL [Suspect]
     Active Substance: DOXORUBICIN HYDROCHLORIDE
     Indication: NON-HODGKIN^S LYMPHOMA
     Dosage: 50 MG/M2, UNK
     Route: 042
     Dates: start: 20180803, end: 20180911
  5. SOLUPRED [METHYLPREDNISOLONE SODIUM SUCCINATE] [Interacting]
     Active Substance: METHYLPREDNISOLONE SODIUM SUCCINATE
     Indication: NON-HODGKIN^S LYMPHOMA
     Dosage: 500 MG, CYCLIC
     Route: 048
     Dates: start: 20180803, end: 201808
  6. CYCLOPHOSPHAMIDE. [Interacting]
     Active Substance: CYCLOPHOSPHAMIDE
     Indication: NON-HODGKIN^S LYMPHOMA
     Dosage: 750 MG/M2, UNK
     Route: 042
     Dates: start: 20180803, end: 20180911

REACTIONS (2)
  - Abdominal wall abscess [Recovering/Resolving]
  - Drug interaction [Recovering/Resolving]

NARRATIVE: CASE EVENT DATE: 20180916
